FAERS Safety Report 12455299 (Version 3)
Quarter: 2016Q2

REPORT INFORMATION
  Report Type: Spontaneous
  Country: ES (occurrence: ES)
  Receive Date: 20160610
  Receipt Date: 20160627
  Transmission Date: 20160815
  Serious: Yes (Death, Hospitalization)
  Sender: FDA-Public Use
  Company Number: ES-JNJFOC-20160604338

PATIENT
  Age: 65 Year
  Sex: Female

DRUGS (2)
  1. IBRUTINIB [Suspect]
     Active Substance: IBRUTINIB
     Indication: CHRONIC LYMPHOCYTIC LEUKAEMIA
     Route: 048
  2. CALCIUM [Interacting]
     Active Substance: CALCIUM
     Indication: HYPOKALAEMIA

REACTIONS (3)
  - Drug interaction [Unknown]
  - Hypocalcaemia [Unknown]
  - Neoplasm progression [Fatal]
